FAERS Safety Report 5121488-7 (Version None)
Quarter: 2006Q4

REPORT INFORMATION
  Report Type: 
  Country: None (occurrence: None)
  Receive Date: 20061003
  Receipt Date: 20060815
  Transmission Date: 20070319
  Serious: Yes (Other)
  Sender: FDA-Public Use
  Company Number: 2006099496

PATIENT
  Sex: Male

DRUGS (1)
  1. XALATAN [Suspect]
     Dosage: (1 IN 1 D), OPHTHALMIC
     Route: 047
     Dates: start: 20050503

REACTIONS (2)
  - HYPERTENSION [None]
  - NERVOUSNESS [None]
